FAERS Safety Report 11811215 (Version 1)
Quarter: 2015Q4

REPORT INFORMATION
  Report Type: Spontaneous
  Country: CN (occurrence: CN)
  Receive Date: 20151208
  Receipt Date: 20151208
  Transmission Date: 20160305
  Serious: Yes (Other)
  Sender: FDA-Public Use
  Company Number: CN-PFIZER INC-2015414082

PATIENT
  Age: 68 Year
  Sex: Male
  Weight: 50 kg

DRUGS (1)
  1. LIPITOR [Suspect]
     Active Substance: ATORVASTATIN CALCIUM
     Indication: LIPIDS ABNORMAL
     Dosage: 20 MG, 1X/DAY (IN THE EVENING)
     Route: 048
     Dates: start: 20130122, end: 20130123

REACTIONS (6)
  - Hypertension [Unknown]
  - Chest discomfort [Recovering/Resolving]
  - Electrocardiogram ST segment abnormal [Unknown]
  - Emotional distress [Unknown]
  - Heart rate increased [Unknown]
  - Palpitations [Recovering/Resolving]

NARRATIVE: CASE EVENT DATE: 20130123
